FAERS Safety Report 24587930 (Version 1)
Quarter: 2024Q4

REPORT INFORMATION
  Report Type: Report from Study
  Country: CN (occurrence: CN)
  Receive Date: 20241107
  Receipt Date: 20241107
  Transmission Date: 20250114
  Serious: Yes (Other)
  Sender: ROCHE
  Company Number: CN-ROCHE-10000124540

PATIENT

DRUGS (1)
  1. BEVACIZUMAB [Suspect]
     Active Substance: BEVACIZUMAB
     Indication: Metastases to central nervous system
     Route: 042

REACTIONS (9)
  - White blood cell count decreased [Unknown]
  - Platelet count decreased [Unknown]
  - Hypertension [Unknown]
  - Nerve injury [Unknown]
  - Gastrointestinal disorder [Unknown]
  - Hair injury [Unknown]
  - Skin injury [Unknown]
  - Renal impairment [Unknown]
  - Off label use [Unknown]
